FAERS Safety Report 7582658-1 (Version None)
Quarter: 2011Q2

REPORT INFORMATION
  Report Type: 
  Country: None (occurrence: None)
  Receive Date: 20110630
  Receipt Date: 20110627
  Transmission Date: 20111010
  Serious: No
  Sender: FDA-Public Use
  Company Number: US-PFIZER INC-2011142861

PATIENT
  Sex: Female
  Weight: 85.261 kg

DRUGS (3)
  1. ZOVIRAX [Concomitant]
     Dosage: UNK
  2. FLUOXETINE [Concomitant]
     Dosage: UNK
  3. GEODON [Suspect]
     Indication: OBSESSIVE-COMPULSIVE DISORDER
     Dosage: 40 MG, 1X/DAY
     Route: 048
     Dates: start: 20110624

REACTIONS (1)
  - FAECES DISCOLOURED [None]
